FAERS Safety Report 5273849-3 (Version None)
Quarter: 2007Q1

REPORT INFORMATION
  Report Type: 
  Country: None (occurrence: None)
  Receive Date: 20070323
  Receipt Date: 20070312
  Transmission Date: 20070707
  Serious: Yes (Other)
  Sender: FDA-Public Use
  Company Number: GB-ROCHE-474082

PATIENT
  Age: 71 Year
  Sex: Male
  Weight: 122 kg

DRUGS (3)
  1. XENICAL [Suspect]
     Indication: OBESITY
     Route: 048
     Dates: start: 20061106, end: 20061207
  2. CARBAMAZEPINE [Interacting]
     Indication: EPILEPSY
     Route: 048
     Dates: start: 19990112
  3. PHENYTOIN [Interacting]
     Indication: EPILEPSY
     Route: 048
     Dates: start: 19910327

REACTIONS (2)
  - DRUG INTERACTION [None]
  - EPILEPSY [None]
